FAERS Safety Report 9450609 (Version 2)
Quarter: 2013Q4

REPORT INFORMATION
  Report Type: Spontaneous
  Country: JP (occurrence: JP)
  Receive Date: 20130809
  Receipt Date: 20131204
  Transmission Date: 20140711
  Serious: Yes (Hospitalization, Other)
  Sender: FDA-Public Use
  Company Number: JP-PFIZER INC-2013231828

PATIENT
  Sex: Female

DRUGS (1)
  1. LYRICA [Suspect]
     Indication: POST HERPETIC NEURALGIA
     Dosage: UNK
     Route: 048
     Dates: start: 201009, end: 20121220

REACTIONS (9)
  - Myocardial infarction [Unknown]
  - Arrhythmia [Unknown]
  - Chest pain [Unknown]
  - Road traffic accident [Unknown]
  - Road traffic accident [Unknown]
  - Palpitations [Unknown]
  - Balance disorder [Unknown]
  - Fall [Unknown]
  - Tachycardia [Unknown]
